FAERS Safety Report 5657892-8 (Version None)
Quarter: 2008Q1

REPORT INFORMATION
  Report Type: 
  Country: None (occurrence: None)
  Receive Date: 20080310
  Receipt Date: 20080225
  Transmission Date: 20080703
  Serious: Yes (Hospitalization)
  Sender: FDA-Public Use
  Company Number: US-AMGEN-QUU267014

PATIENT
  Sex: Male

DRUGS (3)
  1. EPOGEN [Suspect]
     Indication: DIALYSIS
     Route: 058
     Dates: start: 20060801
  2. IRON [Suspect]
     Route: 042
     Dates: start: 20080201
  3. HECTORAL [Concomitant]

REACTIONS (7)
  - ADVERSE DRUG REACTION [None]
  - CARDIAC OPERATION [None]
  - CARDIAC PACEMAKER INSERTION [None]
  - COUGH [None]
  - PRURITUS [None]
  - RASH [None]
  - TACHYARRHYTHMIA [None]
